FAERS Safety Report 7238422-6 (Version None)
Quarter: 2011Q1

REPORT INFORMATION
  Report Type: 
  Country: None (occurrence: None)
  Receive Date: 20110121
  Receipt Date: 20110113
  Transmission Date: 20110831
  Serious: Yes (Hospitalization, Disabling, Other)
  Sender: FDA-Public Use
  Company Number: US-MERCK-1012USA02192

PATIENT
  Age: 65 Year
  Sex: Female
  Weight: 86 kg

DRUGS (19)
  1. ELMIRON [Concomitant]
     Route: 065
  2. LEVOTHYROXINE SODIUM [Concomitant]
     Route: 065
  3. SIMVASTATIN [Concomitant]
     Route: 048
  4. RESTORIL [Concomitant]
     Route: 065
  5. MUPIROCIN [Concomitant]
     Route: 065
  6. CHONDROITIN SULFATE SODIUM AND GLUCOSAMINE SULFATE [Concomitant]
     Route: 065
  7. ALBUTEROL [Concomitant]
     Route: 065
  8. DIAZEPAM [Concomitant]
     Route: 065
  9. HYDROCODONE [Concomitant]
     Route: 065
  10. ZYRTEC [Concomitant]
     Route: 065
  11. ADVAIR [Concomitant]
     Route: 065
  12. CALCIUM (UNSPECIFIED) [Concomitant]
     Route: 065
  13. SINGULAIR [Concomitant]
     Route: 048
  14. MOBIC [Concomitant]
     Route: 065
  15. LASIX [Concomitant]
     Route: 065
  16. ESTRADIOL [Concomitant]
     Route: 065
  17. VITAMIN D (UNSPECIFIED) [Concomitant]
     Route: 065
  18. FOSAMAX [Suspect]
     Indication: OSTEOPOROSIS
     Route: 048
     Dates: end: 20101101
  19. MULTI-VIT [Concomitant]
     Route: 065

REACTIONS (9)
  - SPINAL DISORDER [None]
  - ARTHROPATHY [None]
  - UTERINE DISORDER [None]
  - COLON POLYPECTOMY [None]
  - BARRETT'S OESOPHAGUS [None]
  - PAIN IN EXTREMITY [None]
  - FEMUR FRACTURE [None]
  - ARTHRALGIA [None]
  - ABDOMINAL HERNIA [None]
